FAERS Safety Report 24524463 (Version 1)
Quarter: 2024Q4

REPORT INFORMATION
  Report Type: Report from Study
  Country: US (occurrence: US)
  Receive Date: 20241019
  Receipt Date: 20241019
  Transmission Date: 20250114
  Serious: Yes (Hospitalization)
  Sender: AMGEN
  Company Number: US-AMGEN-USASL2024203353

PATIENT
  Age: 72 Year
  Sex: Female

DRUGS (1)
  1. AMJEVITA [Suspect]
     Active Substance: ADALIMUMAB-ATTO
     Indication: Rheumatoid arthritis
     Dosage: 40 MILLIGRAM, Q2WK
     Route: 065
     Dates: start: 20240715, end: 20240909

REACTIONS (11)
  - Vertigo [Unknown]
  - Lip exfoliation [Unknown]
  - Tremor [Unknown]
  - Pain [Unknown]
  - Peripheral venous disease [Unknown]
  - Hypotension [Unknown]
  - Dry skin [Unknown]
  - Device difficult to use [Unknown]
  - Product communication issue [Unknown]
  - Hyperhidrosis [Unknown]
  - Drug dose omission by device [Unknown]

NARRATIVE: CASE EVENT DATE: 20240101
